FAERS Safety Report 9915248 (Version 1)
Quarter: 2014Q1

REPORT INFORMATION
  Report Type: Spontaneous
  Country: FR (occurrence: FR)
  Receive Date: 20140221
  Receipt Date: 20140221
  Transmission Date: 20141002
  Serious: Yes (Life-Threatening, Hospitalization)
  Sender: FDA-Public Use
  Company Number: FR-BRISTOL-MYERS SQUIBB COMPANY-20180998

PATIENT
  Age: 66 Year
  Sex: Female
  Weight: 96 kg

DRUGS (9)
  1. GLUCOPHAGE TABS 1000 MG [Suspect]
     Indication: TYPE 2 DIABETES MELLITUS
     Dosage: FILM-COATED TABLET
  2. TRIATEC [Suspect]
     Indication: HYPERTENSION
     Dosage: TABLET
     Route: 048
  3. ESIDREX [Suspect]
     Indication: HYPERTENSION
     Dosage: 25 MG TAB AT 0.5MG DOSE
     Route: 048
  4. KARDEGIC [Concomitant]
     Route: 048
  5. DAONIL [Concomitant]
     Indication: TYPE 2 DIABETES MELLITUS
     Route: 048
  6. DAONIL [Concomitant]
     Indication: TYPE 2 DIABETES MELLITUS
     Route: 048
  7. BYETTA [Concomitant]
     Indication: TYPE 2 DIABETES MELLITUS
     Dosage: 10 MICROGRAMS, SOLUTION FOR INJECTION,
  8. VASTEN TABS 20 MG [Concomitant]
     Indication: DYSLIPIDAEMIA
  9. FUMAFER [Concomitant]
     Indication: ANAEMIA
     Dosage: 66 MG?FILM-COATED TABLET
     Route: 048

REACTIONS (3)
  - Renal failure acute [Recovering/Resolving]
  - Hyperkalaemia [Recovering/Resolving]
  - Lactic acidosis [Recovering/Resolving]
